FAERS Safety Report 20573981 (Version 1)
Quarter: 2022Q1

REPORT INFORMATION
  Report Type: Spontaneous
  Country: US (occurrence: None)
  Receive Date: 20220309
  Receipt Date: 20220309
  Transmission Date: 20220423
  Serious: No
  Sender: FDA-Public Use
  Company Number: None

PATIENT
  Age: 48 Year
  Sex: Female

DRUGS (1)
  1. LETAIRIS [Suspect]
     Active Substance: AMBRISENTAN
     Dates: start: 20160309

REACTIONS (4)
  - Cough [None]
  - Sneezing [None]
  - Malaise [None]
  - Therapy interrupted [None]

NARRATIVE: CASE EVENT DATE: 20220223
